FAERS Safety Report 7205901-7 (Version None)
Quarter: 2010Q4

REPORT INFORMATION
  Report Type: 
  Country: None (occurrence: None)
  Receive Date: 20101231
  Receipt Date: 20101224
  Transmission Date: 20110411
  Serious: Yes (Hospitalization)
  Sender: FDA-Public Use
  Company Number: FR-AMGEN-FRACT2010010216

PATIENT
  Sex: Male

DRUGS (4)
  1. DENOSUMAB [Suspect]
     Indication: PROSTATE CANCER
     Dosage: UNK UNK, QMO
     Route: 058
     Dates: start: 20100315
  2. FLUOROURACIL [Concomitant]
     Dosage: UNK
     Route: 042
     Dates: start: 20100719, end: 20101206
  3. CALCIUM LEVOFOLINATE [Concomitant]
     Dosage: UNK
     Route: 042
     Dates: start: 20100719, end: 20101206
  4. OXALIPLATIN [Concomitant]
     Dosage: UNK
     Route: 042
     Dates: start: 20100719, end: 20101206

REACTIONS (1)
  - RENAL FAILURE ACUTE [None]
